FAERS Safety Report 15550078 (Version 1)
Quarter: 2018Q4

REPORT INFORMATION
  Report Type: Spontaneous
  Country: GB (occurrence: GB)
  Receive Date: 20181025
  Receipt Date: 20181025
  Transmission Date: 20190205
  Serious: Yes (Hospitalization, Other)
  Sender: FDA-Public Use
  Company Number: GB-TEVA-2018-GB-968544

PATIENT
  Age: 93 Year
  Sex: Female

DRUGS (10)
  1. BUMETANIDE. [Suspect]
     Active Substance: BUMETANIDE
     Indication: PERIPHERAL SWELLING
     Dosage: 3 MILLIGRAM DAILY; INCREASED TO 2MG MORNING AND 1MG AT LUNCH.
     Dates: start: 20180906, end: 20180919
  2. PREDNISOLONE. [Concomitant]
     Active Substance: PREDNISOLONE
     Dosage: 30 MILLIGRAM DAILY; MORNING
     Dates: start: 20180912, end: 20180917
  3. LEVOTHYROXINE SODIUM. [Concomitant]
     Active Substance: LEVOTHYROXINE SODIUM
  4. CLOPIDOGREL [Concomitant]
     Active Substance: CLOPIDOGREL BISULFATE
  5. FLUCLOXACILLIN [Concomitant]
     Active Substance: FLUCLOXACILLIN
     Dates: start: 20180918, end: 20180919
  6. AQUEOUS CREAM [Concomitant]
  7. SALBUTAMOL [Concomitant]
     Active Substance: ALBUTEROL
     Route: 055
     Dates: start: 20180911
  8. ATORVASTATIN [Concomitant]
     Active Substance: ATORVASTATIN
  9. SALBUTAMOL [Concomitant]
     Active Substance: ALBUTEROL
     Dosage: 2.5MG/2.5ML
     Dates: start: 20180918
  10. HYDROXYCARBAMIDE [Concomitant]
     Active Substance: HYDROXYUREA

REACTIONS (1)
  - Acute kidney injury [Recovering/Resolving]

NARRATIVE: CASE EVENT DATE: 20180919
